FAERS Safety Report 5509506-5 (Version None)
Quarter: 2007Q4

REPORT INFORMATION
  Report Type: 
  Country: None (occurrence: None)
  Receive Date: 20071107
  Receipt Date: 20071026
  Transmission Date: 20080405
  Serious: Yes (Other)
  Sender: FDA-Public Use
  Company Number: GB-PFIZER INC-2007091838

PATIENT
  Age: 33 Year
  Sex: Male

DRUGS (1)
  1. CHAMPIX [Suspect]
     Route: 048
     Dates: start: 20070724, end: 20070821

REACTIONS (4)
  - DEPRESSED MOOD [None]
  - DRUG WITHDRAWAL SYNDROME [None]
  - NAUSEA [None]
  - VOMITING [None]
